FAERS Safety Report 16685009 (Version 1)
Quarter: 2019Q3

REPORT INFORMATION
  Report Type: Spontaneous
  Country: US (occurrence: US)
  Receive Date: 20190808
  Receipt Date: 20190808
  Transmission Date: 20191004
  Serious: Yes (Other)
  Sender: FDA-Public Use
  Company Number: US-GILEAD-2019-0413423

PATIENT
  Age: 76 Year
  Sex: Male

DRUGS (3)
  1. BENDAMUSTINE;RITUXIMAB [Concomitant]
  2. ZYDELIG [Suspect]
     Active Substance: IDELALISIB
     Indication: CHRONIC LYMPHOCYTIC LEUKAEMIA
     Route: 065
  3. CYCLOPHOSPHAMIDE;PREDNISONE;RITUXIMAB;VINCRISTINE [Concomitant]
     Indication: CHRONIC LYMPHOCYTIC LEUKAEMIA

REACTIONS (4)
  - Pneumonitis [Unknown]
  - Treatment failure [Unknown]
  - Pneumonia [Unknown]
  - Hypogammaglobulinaemia [Unknown]
